FAERS Safety Report 8842006 (Version 1)
Quarter: 2012Q4

REPORT INFORMATION
  Report Type: Report from Study
  Country: US (occurrence: US)
  Receive Date: 20121016
  Receipt Date: 20121016
  Transmission Date: 20130627
  Serious: Yes (Other)
  Sender: FDA-Public Use
  Company Number: US-JNJFOC-20121006157

PATIENT
  Age: 30 Year
  Sex: Female

DRUGS (10)
  1. REMICADE [Suspect]
     Indication: ANKYLOSING SPONDYLITIS
     Route: 042
  2. METHOTREXATE [Concomitant]
  3. LEUCOVORIN [Concomitant]
  4. OMEPRAZOLE [Concomitant]
  5. VOLTAREN [Concomitant]
  6. PREDNISONE [Concomitant]
  7. IBUPROFEN [Concomitant]
  8. OXYCODONE [Concomitant]
  9. FLEXERIL [Concomitant]
  10. HUMIRA [Concomitant]

REACTIONS (1)
  - Asthenia [Unknown]
